FAERS Safety Report 17091361 (Version 1)
Quarter: 2019Q4

REPORT INFORMATION
  Report Type: Spontaneous
  Country: SE (occurrence: SE)
  Receive Date: 20191129
  Receipt Date: 20191129
  Transmission Date: 20200122
  Serious: Yes (Hospitalization)
  Sender: FDA-Public Use
  Company Number: SE-AUROBINDO-AUR-APL-2019-075952

PATIENT
  Sex: Male

DRUGS (3)
  1. LERGIGAN (PROMETHAZINE HYDROCHLORIDE) [Suspect]
     Active Substance: PROMETHAZINE HYDROCHLORIDE
     Indication: PRODUCT USED FOR UNKNOWN INDICATION
     Dosage: UNK,EN N?VE LERGIGAN 25 MG KANSKE 10 ST
     Route: 048
     Dates: start: 20181005, end: 20181005
  2. PROPAVAN [Suspect]
     Active Substance: PROPIOMAZINE
     Indication: PRODUCT USED FOR UNKNOWN INDICATION
     Dosage: UNK,^4 PROPAVAN^
     Route: 048
     Dates: start: 20181005, end: 20181005
  3. SERTRALINE [Suspect]
     Active Substance: SERTRALINE HYDROCHLORIDE
     Indication: PRODUCT USED FOR UNKNOWN INDICATION
     Dosage: UNK,4 SERTRALIN
     Route: 048
     Dates: start: 20181005, end: 20181005

REACTIONS (3)
  - Somnolence [Unknown]
  - Intentional overdose [Unknown]
  - Chest discomfort [Unknown]

NARRATIVE: CASE EVENT DATE: 20181005
